FAERS Safety Report 10202472 (Version 2)
Quarter: 2014Q2

REPORT INFORMATION
  Report Type: Spontaneous
  Country: FR (occurrence: FR)
  Receive Date: 20140528
  Receipt Date: 20140530
  Transmission Date: 20141212
  Serious: Yes (Hospitalization)
  Sender: FDA-Public Use
  Company Number: FR-B.I. PHARMACEUTICALS,INC./RIDGEFIELD-2014-BI-23193FF

PATIENT
  Age: 85 Year
  Sex: Male

DRUGS (9)
  1. PRADAXA [Suspect]
     Indication: THROMBOSIS PROPHYLAXIS
     Dosage: 220 MG
     Route: 048
  2. PRADAXA [Suspect]
     Dosage: 150 MG
     Route: 048
     Dates: start: 201301
  3. PRADAXA [Suspect]
     Dosage: 112.5 MG
     Route: 048
  4. AMLOR [Concomitant]
     Route: 065
  5. TEMERIT [Concomitant]
     Dosage: 2.5 MG
     Route: 065
  6. TADENAN [Concomitant]
     Route: 065
  7. TARDYFERON [Concomitant]
     Route: 065
  8. CRESTOR [Concomitant]
     Dosage: 2.1429 MG
     Route: 065
  9. VITAMIN D [Concomitant]
     Route: 065

REACTIONS (3)
  - Femoral neck fracture [Recovered/Resolved]
  - Speech disorder [Not Recovered/Not Resolved]
  - Joint swelling [Not Recovered/Not Resolved]
